FAERS Safety Report 9962619 (Version 1)
Quarter: 2014Q1

REPORT INFORMATION
  Report Type: Report from Study
  Country: US (occurrence: US)
  Receive Date: 20140305
  Receipt Date: 20140305
  Transmission Date: 20141002
  Serious: No
  Sender: FDA-Public Use
  Company Number: US-ABBVIE-13P-163-1110904-00

PATIENT
  Age: 71 Year
  Sex: Female

DRUGS (4)
  1. HUMIRA [Suspect]
     Indication: CROHN^S DISEASE
     Dates: start: 20130509
  2. LASIX [Concomitant]
     Indication: ABDOMINAL DISTENSION
     Dosage: 20 MG DAILY
  3. LASIX [Concomitant]
     Indication: ABDOMINAL DISTENSION
  4. POTASSIUM [Concomitant]
     Indication: CROHN^S DISEASE

REACTIONS (1)
  - Joint swelling [Not Recovered/Not Resolved]
